FAERS Safety Report 5376920-0 (Version None)
Quarter: 2007Q3

REPORT INFORMATION
  Report Type: 
  Country: None (occurrence: None)
  Receive Date: 20070703
  Receipt Date: 20070625
  Transmission Date: 20080115
  Serious: Yes (Death, Hospitalization)
  Sender: FDA-Public Use
  Company Number: JP-ELI_LILLY_AND_COMPANY-JP200706005614

PATIENT
  Age: 62 Year
  Sex: Male
  Weight: 55.3 kg

DRUGS (4)
  1. GEMZAR [Suspect]
     Indication: BILE DUCT CANCER
     Dosage: 1600 MG, OTHER
     Route: 042
     Dates: start: 20060721, end: 20060929
  2. GEMZAR [Suspect]
     Dosage: 1400 MG, OTHER
     Route: 042
     Dates: start: 20061006, end: 20070105
  3. UFT [Concomitant]
     Indication: BILE DUCT CANCER
     Dosage: 400 MG, UNK
     Route: 048
     Dates: start: 20060407
  4. LASIX [Concomitant]
     Indication: ASCITES
     Dosage: 80 MG, DAILY (1/D)
     Route: 048
     Dates: start: 20060721

REACTIONS (4)
  - CHOLANGITIS [None]
  - MALIGNANT NEOPLASM PROGRESSION [None]
  - MALIGNANT PLEURAL EFFUSION [None]
  - NAUSEA [None]
